FAERS Safety Report 9783254 (Version 1)
Quarter: 2013Q4

REPORT INFORMATION
  Report Type: Spontaneous
  Country: US (occurrence: US)
  Receive Date: 20131226
  Receipt Date: 20131226
  Transmission Date: 20140711
  Serious: Yes (Hospitalization)
  Sender: FDA-Public Use
  Company Number: US-PFIZER INC-2013368824

PATIENT
  Age: 44 Year
  Sex: Female
  Weight: 127 kg

DRUGS (2)
  1. CELEBREX [Suspect]
     Indication: ARTHRITIS
     Dosage: 100 MG, 2X/DAY
  2. MOBIC [Suspect]
     Indication: ARTHRITIS
     Dosage: UNK

REACTIONS (2)
  - Fungal infection [Recovered/Resolved]
  - Abdominal discomfort [Unknown]
